FAERS Safety Report 10590462 (Version 2)
Quarter: 2015Q2

REPORT INFORMATION
  Report Type: Spontaneous
  Country: AR (occurrence: AR)
  Receive Date: 20141118
  Receipt Date: 20150504
  Transmission Date: 20150821
  Serious: Yes (Other)
  Sender: FDA-Public Use
  Company Number: AR-PFIZER INC-2014314940

PATIENT
  Age: 13 Year
  Sex: Female

DRUGS (3)
  1. GENOTROPIN [Suspect]
     Active Substance: SOMATROPIN
     Indication: TURNER^S SYNDROME
     Dosage: 1.5 TO 2 MG DAILY
     Dates: start: 20031001
  2. GENOTROPIN [Suspect]
     Active Substance: SOMATROPIN
     Dosage: 0,6 MG TO 1 MG, DAILY
  3. GENOTROPIN [Suspect]
     Active Substance: SOMATROPIN
     Dosage: AT 0.1 TO 0.5 MG, DAILY

REACTIONS (2)
  - Coarctation of the aorta [Not Recovered/Not Resolved]
  - Thyroid disorder [Not Recovered/Not Resolved]
